FAERS Safety Report 12687746 (Version 1)
Quarter: 2016Q3

REPORT INFORMATION
  Report Type: Spontaneous
  Country: GB (occurrence: GB)
  Receive Date: 20160826
  Receipt Date: 20160826
  Transmission Date: 20161109
  Serious: Yes (Other)
  Sender: FDA-Public Use
  Company Number: GB-ACCORD-043355

PATIENT
  Age: 41 Year
  Sex: Female
  Weight: 69.85 kg

DRUGS (2)
  1. TOPIRAMATE. [Suspect]
     Active Substance: TOPIRAMATE
     Indication: HEMIPLEGIC MIGRAINE
     Route: 048
     Dates: start: 20130301, end: 20140401
  2. AMITRIPTYLINE [Concomitant]
     Active Substance: AMITRIPTYLINE

REACTIONS (5)
  - Palpitations [Recovered/Resolved]
  - Abdominal pain upper [Recovered/Resolved]
  - Food intolerance [Not Recovered/Not Resolved]
  - Lethargy [Recovered/Resolved]
  - Decreased appetite [Recovered/Resolved]

NARRATIVE: CASE EVENT DATE: 20140101
